FAERS Safety Report 10695192 (Version 5)
Quarter: 2017Q1

REPORT INFORMATION
  Report Type: Report from Study
  Country: SI (occurrence: SI)
  Receive Date: 20150107
  Receipt Date: 20170124
  Transmission Date: 20170428
  Serious: Yes (Death, Hospitalization, Other)
  Sender: FDA-Public Use
  Company Number: PHHY2014SI154515

PATIENT
  Age: 51 Year
  Sex: Female
  Weight: 55 kg

DRUGS (7)
  1. LDK378 [Suspect]
     Active Substance: CERITINIB
     Indication: LUNG ADENOCARCINOMA METASTATIC
     Dosage: 750 MG, QD
     Route: 048
     Dates: start: 20141027, end: 20141124
  2. OXYCONTIN [Concomitant]
     Active Substance: OXYCODONE HYDROCHLORIDE
     Indication: BONE PAIN
     Dosage: 40 MG, BID
     Route: 065
     Dates: start: 20140521
  3. SEVREDOL [Concomitant]
     Active Substance: MORPHINE
     Indication: BONE PAIN
     Dosage: 20 MG, PRN (IF NECESSARY)
     Route: 065
     Dates: start: 20140521
  4. NOLPAZA [Concomitant]
     Active Substance: PANTOPRAZOLE SODIUM
     Indication: PRODUCT USED FOR UNKNOWN INDICATION
     Route: 065
  5. NAKLOFEN DUO [Concomitant]
     Indication: PRODUCT USED FOR UNKNOWN INDICATION
     Route: 065
  6. LDK378 [Suspect]
     Active Substance: CERITINIB
     Indication: DISEASE PROGRESSION
     Dosage: 600 MG, UNK
     Route: 048
     Dates: start: 20141205, end: 201511
  7. LYRICA [Concomitant]
     Active Substance: PREGABALIN
     Indication: BONE PAIN
     Dosage: 75 MG, BID
     Route: 065
     Dates: start: 20140602

REACTIONS (14)
  - Acute respiratory failure [Unknown]
  - Metastases to liver [Unknown]
  - Disseminated intravascular coagulation [Unknown]
  - Pain in extremity [Unknown]
  - Death [Fatal]
  - Gamma-glutamyltransferase increased [Recovering/Resolving]
  - Back pain [Unknown]
  - Performance status decreased [Unknown]
  - Pleural thickening [Unknown]
  - Fatigue [Unknown]
  - Malignant neoplasm progression [Unknown]
  - Lung adenocarcinoma metastatic [Unknown]
  - Pulmonary embolism [Unknown]
  - Arthralgia [Unknown]

NARRATIVE: CASE EVENT DATE: 20141124
